FAERS Safety Report 9157225 (Version 1)
Quarter: 2013Q1

REPORT INFORMATION
  Report Type: Spontaneous
  Country: US (occurrence: None)
  Receive Date: 20130211
  Receipt Date: 20130211
  Transmission Date: 20140127
  Serious: Yes (Hospitalization, Other)
  Sender: FDA-Public Use
  Company Number: 2013SUN00079

PATIENT
  Age: 66 Year
  Sex: Female

DRUGS (8)
  1. PAROXETINE HYDROCHLORIDE [Suspect]
     Indication: TOXIC ENCEPHALOPATHY
  2. BUPROPION HYDROCHLORIDE [Suspect]
     Indication: NON-HODGKIN^S LYMPHOMA
  3. CARBOPLATIN [Suspect]
     Indication: NON-HODGKIN^S LYMPHOMA
  4. METHYLTHIONINIUM CHLORIDE [Suspect]
     Indication: TOXIC ENCEPHALOPATHY
  5. IFOSFAMIDE (IFOSFAMIDE) [Concomitant]
  6. ETOPOSIDE (ETOPOSIDE) [Concomitant]
  7. DEXAMETHASONE (DEXAMETHASONE) [Concomitant]
  8. APREPITANT (APREPITANT) [Concomitant]

REACTIONS (12)
  - Serotonin syndrome [None]
  - Deep vein thrombosis [None]
  - Pleural effusion [None]
  - Pulmonary oedema [None]
  - Infection [None]
  - Aspiration [None]
  - Aspartate aminotransferase increased [None]
  - Alanine aminotransferase increased [None]
  - Acidosis [None]
  - Delirium [None]
  - Blood creatinine increased [None]
  - Blood urea increased [None]
